FAERS Safety Report 23743671 (Version 1)
Quarter: 2024Q2

REPORT INFORMATION
  Report Type: Spontaneous
  Country: PL (occurrence: PL)
  Receive Date: 20240415
  Receipt Date: 20240415
  Transmission Date: 20240716
  Serious: Yes (Death, Hospitalization, Other)
  Sender: FDA-Public Use
  Company Number: PL-EMA-DD-20210818-bhardwaj_r-120632

PATIENT
  Age: 66 Year
  Sex: Male
  Weight: 79.5 kg

DRUGS (2)
  1. CARBOPLATIN [Suspect]
     Active Substance: CARBOPLATIN
     Indication: Non-small cell lung cancer stage IV
     Dosage: TIW,AUC OF 5 MG/ML/MINUTE,REGIMEN #1
     Route: 042
     Dates: start: 20191210, end: 20200218
  2. PEMETREXED [Suspect]
     Active Substance: PEMETREXED
     Indication: Non-small cell lung cancer stage IV
     Dosage: 500 MG/M2, TIW
     Route: 042
     Dates: start: 20191210, end: 20200218

REACTIONS (5)
  - Anaemia [Fatal]
  - Circulatory collapse [Fatal]
  - Respiratory failure [Fatal]
  - Neoplasm progression [Fatal]
  - General physical health deterioration [Fatal]

NARRATIVE: CASE EVENT DATE: 20200201
